FAERS Safety Report 20089168 (Version 1)
Quarter: 2021Q4

REPORT INFORMATION
  Report Type: Spontaneous
  Country: US (occurrence: None)
  Receive Date: 20211119
  Receipt Date: 20211119
  Transmission Date: 20220303
  Serious: No
  Sender: FDA-Public Use
  Company Number: US-ALVOGEN-2021-ALVOGEN-116701

PATIENT
  Sex: Male

DRUGS (9)
  1. LISINOPRIL [Suspect]
     Active Substance: LISINOPRIL
     Indication: Diabetes mellitus
  2. ASPIRIN [Concomitant]
     Active Substance: ASPIRIN
     Indication: Vascular graft
     Route: 048
  3. CANAGLIFLOZIN [Concomitant]
     Active Substance: CANAGLIFLOZIN
     Indication: Diabetes mellitus
     Route: 048
  4. METFORMIN [Concomitant]
     Active Substance: METFORMIN HYDROCHLORIDE
     Indication: Diabetes mellitus
     Dosage: TWICE DAILY
     Route: 048
  5. GLIMEPIRIDE [Concomitant]
     Active Substance: GLIMEPIRIDE
     Indication: Diabetes mellitus
     Dosage: DAILY
  6. METOPROLOL TARTRATE [Concomitant]
     Active Substance: METOPROLOL TARTRATE
     Indication: Blood pressure abnormal
  7. ATORVASTATIN [Concomitant]
     Active Substance: ATORVASTATIN
     Indication: Blood cholesterol
  8. ASCORBIC ACID/BIOTIN/CALCIUM/CALCIUM PANTOTHENATE/CHLORINE/CHROMIUM/CO [Concomitant]
     Indication: General physical condition
     Route: 048
  9. COD-LIVER OIL/RETINOL/TOCOPHEROL/UBIDECARENONE/VITAMIN D NOS [Concomitant]
     Indication: Blood cholesterol
     Route: 048

REACTIONS (1)
  - Muscle spasms [Not Recovered/Not Resolved]
